FAERS Safety Report 25644129 (Version 4)
Quarter: 2025Q3

REPORT INFORMATION
  Report Type: Spontaneous
  Country: EU (occurrence: EU)
  Receive Date: 20250805
  Receipt Date: 20250818
  Transmission Date: 20251021
  Serious: Yes (Death)
  Sender: EXELIXIS
  Company Number: EU-IPSEN Group, Research and Development-2025-16015

PATIENT
  Sex: Male

DRUGS (1)
  1. CABOMETYX [Suspect]
     Active Substance: CABOZANTINIB S-MALATE
     Indication: Product used for unknown indication

REACTIONS (9)
  - Neoplasm malignant [Fatal]
  - Hypopnoea [Recovering/Resolving]
  - Paraesthesia [Recovering/Resolving]
  - Madarosis [Unknown]
  - Chest discomfort [Recovering/Resolving]
  - Muscle spasms [Recovering/Resolving]
  - Muscle spasms [Recovering/Resolving]
  - Arthralgia [Unknown]
  - Blister [Unknown]
